FAERS Safety Report 16312625 (Version 1)
Quarter: 2019Q2

REPORT INFORMATION
  Report Type: Report from Study
  Country: DE (occurrence: DE)
  Receive Date: 20190515
  Receipt Date: 20190515
  Transmission Date: 20190711
  Serious: Yes (Death)
  Sender: FDA-Public Use
  Company Number: DE-ROCHE-2316400

PATIENT

DRUGS (1)
  1. ALTEPLASE. [Suspect]
     Active Substance: ALTEPLASE
     Indication: ISCHAEMIC STROKE
     Dosage: RT-PA DOSAGE OF 0.9 MG/KG BODY WEIGHT WITH A MAXIMAL DOSAGE OF 90MG RT-PA
     Route: 042

REACTIONS (1)
  - Cardiac arrest [Fatal]
